FAERS Safety Report 6112722-5 (Version None)
Quarter: 2009Q1

REPORT INFORMATION
  Report Type: 
  Country: None (occurrence: None)
  Receive Date: 20090310
  Receipt Date: 20090225
  Transmission Date: 20090719
  Serious: Yes (Other)
  Sender: FDA-Public Use
  Company Number: 1000005061

PATIENT
  Age: 15 Year
  Sex: Female
  Weight: 60 kg

DRUGS (3)
  1. CITALOPRAM HYDROBROMIDE [Suspect]
     Dosage: 60 MG (60 MG, ONCE), ORAL; (10 MG), ORAL
     Route: 048
     Dates: start: 20090109, end: 20090109
  2. LORAZEPAM [Suspect]
     Dosage: 20 MG (20 MG, ONCE), ORAL
     Route: 048
     Dates: start: 20090109, end: 20090109
  3. NOVOTHYRAL (100 MICROGRAM) [Suspect]
     Dosage: 800 MCG (800 MCG, ONCE), ORAL
     Route: 048
     Dates: start: 20090109, end: 20090109

REACTIONS (6)
  - DISORIENTATION [None]
  - ENURESIS [None]
  - FATIGUE [None]
  - INTENTIONAL OVERDOSE [None]
  - LOSS OF CONSCIOUSNESS [None]
  - SUICIDE ATTEMPT [None]
